FAERS Safety Report 18019757 (Version 1)
Quarter: 2020Q3

REPORT INFORMATION
  Report Type: Spontaneous
  Country: US (occurrence: US)
  Receive Date: 20200713
  Receipt Date: 20200713
  Transmission Date: 20201103
  Serious: Yes (Hospitalization)
  Sender: FDA-Public Use
  Company Number: None

PATIENT
  Age: 63 Year
  Sex: Female

DRUGS (1)
  1. POMALYST [Suspect]
     Active Substance: POMALIDOMIDE
     Indication: PLASMA CELL MYELOMA
     Dosage: ?          OTHER FREQUENCY:DAILY X 21D/28D;?
     Route: 048
     Dates: start: 20200430

REACTIONS (3)
  - Dizziness [None]
  - Somnolence [None]
  - Pulmonary embolism [None]

NARRATIVE: CASE EVENT DATE: 20200617
